FAERS Safety Report 9640441 (Version 1)
Quarter: 2013Q4

REPORT INFORMATION
  Report Type: Spontaneous
  Country: US (occurrence: None)
  Receive Date: 20131022
  Receipt Date: 20131022
  Transmission Date: 20140711
  Serious: Yes (Other)
  Sender: FDA-Public Use
  Company Number: None

PATIENT
  Age: 33 None
  Sex: Female
  Weight: 61.24 kg

DRUGS (7)
  1. VENLAFAXINE HCL ER [Suspect]
     Indication: MAJOR DEPRESSION
     Route: 048
     Dates: start: 20071113, end: 20130912
  2. VENLAFAXINE HCL ER [Suspect]
     Indication: ANXIETY
     Route: 048
     Dates: start: 20071113, end: 20130912
  3. PRENATAL MULTIVITMAIN [Concomitant]
  4. PRENATAL DHA [Concomitant]
  5. ADVIL [Concomitant]
  6. SALINE SINUS RINSE [Concomitant]
  7. PEPTO BISMOL [Concomitant]

REACTIONS (10)
  - Dizziness [None]
  - Confusional state [None]
  - Disturbance in attention [None]
  - Nausea [None]
  - Fatigue [None]
  - Asthenia [None]
  - Tinnitus [None]
  - Irritability [None]
  - Temperature regulation disorder [None]
  - Impaired driving ability [None]
